FAERS Safety Report 7247125-3 (Version None)
Quarter: 2011Q1

REPORT INFORMATION
  Report Type: 
  Country: None (occurrence: None)
  Receive Date: 20110127
  Receipt Date: 20100804
  Transmission Date: 20110831
  Serious: No
  Sender: FDA-Public Use
  Company Number: US-BAUSCH-2010BL004272

PATIENT
  Age: 62 Year
  Sex: Female

DRUGS (6)
  1. ASPIRIN [Concomitant]
  2. PRILOSEC [Concomitant]
     Indication: HIATUS HERNIA
  3. OSTEO BI-FLEX [Concomitant]
     Indication: VITAMIN SUPPLEMENTATION
  4. CLARITIN /USA/ [Concomitant]
  5. ALAWAY [Suspect]
     Indication: CONJUNCTIVITIS ALLERGIC
     Route: 047
     Dates: start: 20100803
  6. MULTI-VITAMINS [Concomitant]
     Indication: VITAMIN SUPPLEMENTATION

REACTIONS (2)
  - DRY EYE [None]
  - DRUG EFFECT DECREASED [None]
